FAERS Safety Report 18384634 (Version 1)
Quarter: 2020Q4

REPORT INFORMATION
  Report Type: Spontaneous
  Country: JP (occurrence: JP)
  Receive Date: 20201015
  Receipt Date: 20201015
  Transmission Date: 20210114
  Serious: Yes (Other)
  Sender: FDA-Public Use
  Company Number: JP-PFIZER INC-2019014930

PATIENT
  Age: 94 Year
  Sex: Female
  Weight: 37 kg

DRUGS (9)
  1. AMLODIPINE BESILATE [Suspect]
     Active Substance: AMLODIPINE BESYLATE
     Indication: BLOOD PRESSURE INCREASED
     Dosage: 2.5 MG
     Route: 048
  2. RIZE [Suspect]
     Active Substance: CLOTIAZEPAM
     Indication: INSOMNIA
     Dosage: 10 MG, 1X/DAY
     Route: 048
  3. RIZE [Suspect]
     Active Substance: CLOTIAZEPAM
     Dosage: 5 MG
     Route: 048
  4. RIZE [Suspect]
     Active Substance: CLOTIAZEPAM
     Indication: BLOOD PRESSURE INCREASED
     Dosage: UNK
     Route: 048
  5. RIZE [Suspect]
     Active Substance: CLOTIAZEPAM
     Indication: IRRITABILITY
     Dosage: 5 MG, 3X/DAY
     Route: 048
  6. RIZE [Suspect]
     Active Substance: CLOTIAZEPAM
     Dosage: 5 MG, 3X/DAY (5 MILLIGRAM, TID)
     Route: 048
  7. AMOBAN [Concomitant]
     Active Substance: ZOPICLONE
     Dosage: UNK
     Route: 048
  8. RIZE [Suspect]
     Active Substance: CLOTIAZEPAM
     Dosage: 10 MG, AS NEEDED (^1 TABLET OF RIZE 10 MG^, ^SHE TOOK RIZE WHEN NEEDED^)
     Route: 048
  9. RIZE [Suspect]
     Active Substance: CLOTIAZEPAM
     Dosage: 10 MG, DAILY (10 MG , QD)
     Route: 048

REACTIONS (13)
  - Head injury [Recovered/Resolved]
  - Circadian rhythm sleep disorder [Unknown]
  - Somnolence [Unknown]
  - Fall [Recovered/Resolved]
  - Hypertension [Unknown]
  - Weight decreased [Unknown]
  - Therapeutic product effect incomplete [Unknown]
  - Dizziness [Unknown]
  - Muscular weakness [Unknown]
  - Accidental exposure to product [Unknown]
  - Extradural haematoma [Recovered/Resolved]
  - Asthenia [Unknown]
  - Balance disorder [Recovered/Resolved]

NARRATIVE: CASE EVENT DATE: 20170602
